FAERS Safety Report 7095581-6 (Version None)
Quarter: 2010Q4

REPORT INFORMATION
  Report Type: 
  Country: None (occurrence: None)
  Receive Date: 20101103
  Receipt Date: 20101027
  Transmission Date: 20110411
  Serious: Yes (Other)
  Sender: FDA-Public Use
  Company Number: 021171

PATIENT
  Sex: Female

DRUGS (6)
  1. XYZAL [Suspect]
     Dosage: 5 MG QD ORAL
     Route: 048
     Dates: start: 20090501
  2. GARDASIL (GARDASIL) (NOT SPECIIFED) [Suspect]
     Dosage: 3 INJECTIONS INTRAMUSCULAR
     Route: 030
     Dates: start: 20071001
  3. NASACORT [Suspect]
     Dosage: 55 UG BID NASAL
     Route: 045
     Dates: start: 20090501, end: 20091001
  4. DROSPIRENONE AND ETHINYL ESTRADIOL [Concomitant]
  5. CROMOGLICIC ACID [Concomitant]
  6. MONTELUKAST SODIUM [Concomitant]

REACTIONS (1)
  - LUPUS-LIKE SYNDROME [None]
